FAERS Safety Report 7546839-5 (Version None)
Quarter: 2011Q2

REPORT INFORMATION
  Report Type: 
  Country: None (occurrence: None)
  Receive Date: 20110614
  Receipt Date: 20110530
  Transmission Date: 20111010
  Serious: Yes (Other)
  Sender: FDA-Public Use
  Company Number: CA-JNJFOC-20110600788

PATIENT
  Age: 67 Year
  Sex: Female

DRUGS (3)
  1. REMICADE [Suspect]
     Indication: RHEUMATOID ARTHRITIS
     Route: 042
     Dates: start: 20070101
  2. PREDNISONE [Concomitant]
     Route: 065
  3. NAPROXEN [Concomitant]
     Route: 065

REACTIONS (3)
  - CHAPPED LIPS [None]
  - STOMATITIS [None]
  - LIP BLISTER [None]
